FAERS Safety Report 9768374 (Version 2)
Quarter: 2014Q1

REPORT INFORMATION
  Report Type: Spontaneous
  Country: ES (occurrence: ES)
  Receive Date: 20131217
  Receipt Date: 20140103
  Transmission Date: 20141002
  Serious: Yes (Other)
  Sender: FDA-Public Use
  Company Number: ES-GILEAD-2013-0089815

PATIENT
  Age: 60 Year
  Sex: Male

DRUGS (3)
  1. VIREAD [Suspect]
     Indication: HEPATITIS B
     Dosage: 245 MG, QD
     Route: 065
     Dates: start: 201006
  2. TROMALYT [Interacting]
     Indication: ATRIAL FIBRILLATION
     Dosage: UNK
     Dates: start: 2012
  3. OMEPRAZOLE [Concomitant]

REACTIONS (3)
  - Polyneuropathy [Unknown]
  - Atrial fibrillation [Unknown]
  - Drug interaction [Unknown]
